FAERS Safety Report 17712945 (Version 1)
Quarter: 2020Q2

REPORT INFORMATION
  Report Type: Report from Study
  Country: None (occurrence: US)
  Receive Date: 20200427
  Receipt Date: 20200427
  Transmission Date: 20200714
  Serious: Yes (Other)
  Sender: FDA-Public Use
  Company Number: US-ABBVIE-20K-163-3375598-00

PATIENT
  Age: 18 Year
  Sex: Female

DRUGS (1)
  1. HUMIRA [Suspect]
     Active Substance: ADALIMUMAB
     Indication: PRODUCT USED FOR UNKNOWN INDICATION
     Dosage: CITRATE FREE
     Route: 058

REACTIONS (8)
  - Gastrointestinal oedema [Unknown]
  - Loss of consciousness [Recovering/Resolving]
  - Abdominal pain [Unknown]
  - Crohn^s disease [Recovering/Resolving]
  - Nausea [Unknown]
  - Diarrhoea [Unknown]
  - Loss of consciousness [Recovered/Resolved]
  - Gastrointestinal bacterial infection [Recovering/Resolving]

NARRATIVE: CASE EVENT DATE: 20200207
